FAERS Safety Report 22269358 (Version 1)
Quarter: 2023Q2

REPORT INFORMATION
  Report Type: Spontaneous
  Country: US (occurrence: US)
  Receive Date: 20230501
  Receipt Date: 20230501
  Transmission Date: 20230722
  Serious: Yes (Other)
  Sender: FDA-Public Use
  Company Number: US-002147023-NVSC2023US093646

PATIENT
  Age: 90 Year
  Sex: Female

DRUGS (3)
  1. RECLAST [Suspect]
     Active Substance: ZOLEDRONIC ACID
     Indication: Product used for unknown indication
     Dosage: UNK
     Route: 065
  2. RECLAST [Suspect]
     Active Substance: ZOLEDRONIC ACID
     Dosage: UNK
     Route: 065
     Dates: start: 20230421
  3. LISINOPRIL [Concomitant]
     Active Substance: LISINOPRIL
     Indication: Product used for unknown indication
     Dosage: UNK
     Route: 065

REACTIONS (13)
  - Pseudophakic bullous keratopathy [Unknown]
  - Blindness [Unknown]
  - Osteoporosis [Unknown]
  - Blood calcium increased [Unknown]
  - Fibromyalgia [Unknown]
  - Aortic disorder [Unknown]
  - Lung disorder [Unknown]
  - Movement disorder [Unknown]
  - Urine output increased [Unknown]
  - Urinary incontinence [Unknown]
  - Pain [Unknown]
  - Pyrexia [Unknown]
  - Myalgia [Unknown]

NARRATIVE: CASE EVENT DATE: 20230421
